FAERS Safety Report 17068757 (Version 1)
Quarter: 2019Q4

REPORT INFORMATION
  Report Type: Spontaneous
  Country: GB (occurrence: GB)
  Receive Date: 20191123
  Receipt Date: 20191123
  Transmission Date: 20200122
  Serious: Yes (Other)
  Sender: FDA-Public Use
  Company Number: ALC2019GB001436

PATIENT

DRUGS (4)
  1. CYCLOPENTOLATE HYDROCHLORIDE. [Suspect]
     Active Substance: CYCLOPENTOLATE HYDROCHLORIDE
     Indication: PRODUCT USED FOR UNKNOWN INDICATION
     Dosage: 1 %, TID
     Route: 061
  2. CHLORAMPHENICOL [Suspect]
     Active Substance: CHLORAMPHENICOL
     Indication: PRODUCT USED FOR UNKNOWN INDICATION
     Dosage: 0.5 %, QID
     Route: 061
  3. DICLOFENAC SODIUM 25MG TABLETS [Suspect]
     Active Substance: DICLOFENAC SODIUM
     Dosage: 0.1 %, QID
     Route: 061
  4. SODIUM HYALURONATE [Suspect]
     Active Substance: HYALURONATE SODIUM
     Dosage: 0.2 %, Q2H
     Route: 061

REACTIONS (2)
  - Keratopathy [Recovering/Resolving]
  - Visual impairment [Recovering/Resolving]
